FAERS Safety Report 20063201 (Version 1)
Quarter: 2021Q4

REPORT INFORMATION
  Report Type: Spontaneous
  Country: NL (occurrence: NL)
  Receive Date: 20211112
  Receipt Date: 20211112
  Transmission Date: 20220303
  Serious: Yes (Other)
  Sender: FDA-Public Use
  Company Number: None

PATIENT
  Sex: Female
  Weight: 70 kg

DRUGS (1)
  1. FOLIC ACID [Suspect]
     Active Substance: FOLIC ACID
     Indication: Prophylaxis
     Dosage: 5 MG, THERAPY END DATE: ASKU
     Route: 065
     Dates: start: 2020

REACTIONS (3)
  - Abortion spontaneous [Unknown]
  - Heavy menstrual bleeding [Unknown]
  - Maternal exposure during pregnancy [Unknown]
